FAERS Safety Report 14046527 (Version 1)
Quarter: 2017Q4

REPORT INFORMATION
  Report Type: Spontaneous
  Country: US (occurrence: US)
  Receive Date: 20171005
  Receipt Date: 20171005
  Transmission Date: 20180321
  Serious: Yes (Hospitalization, Other)
  Sender: FDA-Public Use
  Company Number: US-ACCORD-059537

PATIENT
  Age: 17 Month
  Sex: Male

DRUGS (5)
  1. ETOPOSIDE. [Suspect]
     Active Substance: ETOPOSIDE
     Indication: ATYPICAL TERATOID/RHABDOID TUMOUR OF CNS
  2. CISPLATIN. [Suspect]
     Active Substance: CISPLATIN
     Indication: ATYPICAL TERATOID/RHABDOID TUMOUR OF CNS
  3. CYCLOPHOSPHAMIDE/CYCLOPHOSPHAMIDE MONOHYDRATE [Suspect]
     Active Substance: CYCLOPHOSPHAMIDE
     Indication: ATYPICAL TERATOID/RHABDOID TUMOUR OF CNS
  4. VINCRISTINE [Suspect]
     Active Substance: VINCRISTINE
     Indication: ATYPICAL TERATOID/RHABDOID TUMOUR OF CNS
  5. METHOTREXATE. [Suspect]
     Active Substance: METHOTREXATE
     Indication: ATYPICAL TERATOID/RHABDOID TUMOUR OF CNS
     Dosage: HIGH-DOSE

REACTIONS (7)
  - Neutropenia [Unknown]
  - Condition aggravated [None]
  - Off label use [Unknown]
  - Mucosal inflammation [Not Recovered/Not Resolved]
  - Pneumonia [Not Recovered/Not Resolved]
  - Inappropriate antidiuretic hormone secretion [None]
  - Hyperkalaemia [None]
